FAERS Safety Report 9835140 (Version 2)
Quarter: 2014Q1

REPORT INFORMATION
  Report Type: Spontaneous
  Country: US (occurrence: US)
  Receive Date: 20140122
  Receipt Date: 20140122
  Transmission Date: 20141002
  Serious: No
  Sender: FDA-Public Use
  Company Number: US-BRISTOL-MYERS SQUIBB COMPANY-19813252

PATIENT
  Age: 65 Year
  Sex: Female
  Weight: 53.51 kg

DRUGS (5)
  1. ELIQUIS [Suspect]
     Indication: ATRIAL FIBRILLATION
     Dosage: TABS
     Route: 048
     Dates: start: 20131112
  2. GABAPENTIN [Concomitant]
  3. ATENOLOL [Concomitant]
  4. ASPIRIN [Concomitant]
  5. PATANASE [Concomitant]
     Dosage: NASAL SPRAY
     Route: 045

REACTIONS (4)
  - Fatigue [Recovering/Resolving]
  - Change of bowel habit [Recovered/Resolved]
  - Headache [Unknown]
  - Feeling abnormal [Unknown]
